FAERS Safety Report 23924326 (Version 3)
Quarter: 2024Q3

REPORT INFORMATION
  Report Type: Spontaneous
  Country: JP (occurrence: JP)
  Receive Date: 20240531
  Receipt Date: 20240730
  Transmission Date: 20241016
  Serious: Yes (Hospitalization, Other)
  Sender: BRISTOL MYERS SQUIBB
  Company Number: JP-BRISTOL-MYERS SQUIBB COMPANY-2024-084318

PATIENT

DRUGS (2)
  1. YERVOY [Suspect]
     Active Substance: IPILIMUMAB
     Indication: Oesophageal carcinoma recurrent
     Route: 041
  2. OPDIVO [Suspect]
     Active Substance: NIVOLUMAB
     Indication: Oesophageal carcinoma recurrent

REACTIONS (7)
  - Immune-mediated hypophysitis [Unknown]
  - Headache [Unknown]
  - Neck pain [Unknown]
  - Hyperpyrexia [Unknown]
  - Arthralgia [Unknown]
  - Adrenal insufficiency [Unknown]
  - Central hypothyroidism [Unknown]
